FAERS Safety Report 5690561-7 (Version None)
Quarter: 2008Q2

REPORT INFORMATION
  Report Type: 
  Country: None (occurrence: None)
  Receive Date: 20080401
  Receipt Date: 19830919
  Transmission Date: 20081010
  Serious: Yes (Death, Congenital Anomaly)
  Sender: FDA-Public Use
  Company Number: US-ROCHE-830200036001

PATIENT
  Sex: Male
  Weight: 3.3 kg

DRUGS (1)
  1. ACCUTANE [Suspect]
     Dates: start: 19820806, end: 19821231

REACTIONS (5)
  - DYSMORPHISM [None]
  - EAR MALFORMATION [None]
  - FALLOT'S TETRALOGY [None]
  - HYDROCEPHALUS [None]
  - PNEUMONIA [None]
